FAERS Safety Report 5290545-7 (Version None)
Quarter: 2007Q2

REPORT INFORMATION
  Report Type: 
  Country: None (occurrence: None)
  Receive Date: 20070405
  Receipt Date: 20070405
  Transmission Date: 20071010
  Serious: Yes (Hospitalization)
  Sender: FDA-Public Use
  Company Number: None

PATIENT
  Sex: Male
  Weight: 74 kg

DRUGS (3)
  1. CYCLOPHOSPHAMIDE [Suspect]
     Dosage: 2000 MG
     Dates: end: 20070215
  2. CYTARABINE [Suspect]
     Dosage: 12000 MG
     Dates: end: 20070217
  3. L-ASPARIGINASE [Suspect]
     Dosage: 36000 MG
     Dates: end: 20070308

REACTIONS (6)
  - HAEMATOCRIT DECREASED [None]
  - HAEMOGLOBIN DECREASED [None]
  - HEADACHE [None]
  - INJECTION SITE PAIN [None]
  - LEUKOPENIA [None]
  - PYREXIA [None]
